FAERS Safety Report 10962388 (Version 1)
Quarter: 2015Q1

REPORT INFORMATION
  Report Type: Spontaneous
  Country: JP (occurrence: JP)
  Receive Date: 20150327
  Receipt Date: 20150327
  Transmission Date: 20150721
  Serious: Yes (Hospitalization, Other)
  Sender: FDA-Public Use
  Company Number: JP-ELI_LILLY_AND_COMPANY-JP201503006725

PATIENT
  Age: 28 Year
  Sex: Female

DRUGS (2)
  1. HUMALOG [Suspect]
     Active Substance: INSULIN LISPRO
     Indication: TYPE 1 DIABETES MELLITUS
     Dosage: 12.3 IU, OTHER
     Route: 058
     Dates: start: 201204, end: 20140820
  2. HUMALOG [Suspect]
     Active Substance: INSULIN LISPRO
     Dosage: 5.6 IU, OTHER
     Route: 058

REACTIONS (6)
  - Premature rupture of membranes [Recovered/Resolved]
  - Obstructed labour [Recovered/Resolved]
  - Maternal exposure during pregnancy [Recovered/Resolved]
  - Exposure during breast feeding [Unknown]
  - Hypoglycaemia [Recovered/Resolved]
  - Maternal exposure before pregnancy [Recovered/Resolved]

NARRATIVE: CASE EVENT DATE: 201204
